FAERS Safety Report 19990359 (Version 2)
Quarter: 2021Q4

REPORT INFORMATION
  Report Type: Spontaneous
  Country: US (occurrence: US)
  Receive Date: 20211025
  Receipt Date: 20211029
  Transmission Date: 20220303
  Serious: Yes (Other)
  Sender: FDA-Public Use
  Company Number: NVSC2021US239920

PATIENT
  Sex: Female

DRUGS (10)
  1. POVIDONE-IODINE [Suspect]
     Active Substance: POVIDONE-IODINE
     Indication: Surgery
     Route: 061
  2. OFLOXACIN [Suspect]
     Active Substance: OFLOXACIN
     Indication: Preoperative care
     Dosage: UNK, QID, 3 DAYS BEFORE SURGERY
     Route: 065
  3. OFLOXACIN [Suspect]
     Active Substance: OFLOXACIN
     Indication: Postoperative care
     Dosage: UNK, QID,2 WEEKS
     Route: 065
  4. LIDOCAINE [Suspect]
     Active Substance: LIDOCAINE
     Indication: Preoperative care
     Dosage: UNK
     Route: 065
  5. LIDOCAINE [Suspect]
     Active Substance: LIDOCAINE
     Dosage: UNK (GEL)
     Route: 065
  6. VANCOMYCIN [Suspect]
     Active Substance: VANCOMYCIN
     Indication: Product used for unknown indication
     Dosage: 0.2 UNK OF 50 MG/ML, ADDED TO BSS BAG
     Route: 065
  7. ILEVRO [Suspect]
     Active Substance: NEPAFENAC
     Indication: Postoperative care
     Dosage: UNK, QD FOR 4 WEEKS
     Route: 065
  8. DUREZOL [Suspect]
     Active Substance: DIFLUPREDNATE
     Indication: Postoperative care
     Dosage: UNK, BID, FOR 2 WEEKS
     Route: 065
  9. DUREZOL [Suspect]
     Active Substance: DIFLUPREDNATE
     Dosage: UNK, QD, FOR 2 WEEKS
     Route: 065
  10. BSS [Suspect]
     Active Substance: CALCIUM CHLORIDE\MAGNESIUM CHLORIDE\POTASSIUM CHLORIDE\SODIUM ACETATE\SODIUM CHLORIDE\SODIUM CITRATE
     Indication: Product used for unknown indication
     Dosage: UNK
     Route: 065

REACTIONS (2)
  - Toxic anterior segment syndrome [Recovering/Resolving]
  - Aqueous fibrin [Recovering/Resolving]
